FAERS Safety Report 4402923-6 (Version None)
Quarter: 2004Q3

REPORT INFORMATION
  Report Type: 
  Country: None (occurrence: None)
  Receive Date: 20040721
  Receipt Date: 20030603
  Transmission Date: 20050211
  Serious: No
  Sender: FDA-Public Use
  Company Number: US-GLAXOSMITHKLINE-A0413231A

PATIENT
  Age: 54 Year
  Sex: Male

DRUGS (13)
  1. IMITREX [Suspect]
     Indication: ILL-DEFINED DISORDER
     Dosage: 25MG AS REQUIRED
     Route: 048
  2. PROTONIX [Concomitant]
     Dosage: 40MG PER DAY
  3. NAPROSYN [Concomitant]
     Dosage: 500MG TWICE PER DAY
  4. ZOLOFT [Concomitant]
     Dosage: 50MG PER DAY
  5. ZETIA [Concomitant]
     Dosage: 10MG PER DAY
  6. GLUCOTROL XL [Concomitant]
     Dosage: 10MG PER DAY
  7. ACTOS [Concomitant]
  8. NEURONTIN [Concomitant]
     Dosage: 100MG TWICE PER DAY
  9. TRENTAL [Concomitant]
     Dosage: 400MG THREE TIMES PER DAY
  10. TENORMIN [Concomitant]
     Dosage: 25MG PER DAY
  11. LASIX [Concomitant]
     Dosage: 40MG PER DAY
  12. NITRO [Concomitant]
  13. FIORICET [Concomitant]

REACTIONS (1)
  - DIABETES MELLITUS INADEQUATE CONTROL [None]
